FAERS Safety Report 19375025 (Version 1)
Quarter: 2021Q2

REPORT INFORMATION
  Report Type: Spontaneous
  Country: US (occurrence: US)
  Receive Date: 20210604
  Receipt Date: 20210604
  Transmission Date: 20210717
  Serious: No
  Sender: FDA-Public Use
  Company Number: US-SA-2021SA176798

PATIENT
  Age: 70 Year
  Sex: Male

DRUGS (1)
  1. TOUJEO [Suspect]
     Active Substance: INSULIN GLARGINE
     Dosage: 20 ENZYME UNITS, ONCE DAILY
     Route: 065
     Dates: start: 20210521

REACTIONS (1)
  - Product dose omission issue [Unknown]
